FAERS Safety Report 9891950 (Version 1)
Quarter: 2014Q1

REPORT INFORMATION
  Report Type: Spontaneous
  Country: US (occurrence: US)
  Receive Date: 20140212
  Receipt Date: 20140212
  Transmission Date: 20141002
  Serious: Yes (Other)
  Sender: FDA-Public Use
  Company Number: US-JNJFOC-20140118923

PATIENT
  Sex: Female

DRUGS (2)
  1. RISPERDAL [Suspect]
     Indication: BIPOLAR DISORDER
     Route: 064
  2. ABILIFY [Suspect]
     Indication: BIPOLAR DISORDER
     Route: 064

REACTIONS (2)
  - Convulsion [Not Recovered/Not Resolved]
  - Foetal exposure during pregnancy [Recovered/Resolved]
